FAERS Safety Report 11812690 (Version 2)
Quarter: 2015Q4

REPORT INFORMATION
  Report Type: Spontaneous
  Country: US (occurrence: US)
  Receive Date: 20151208
  Receipt Date: 20151209
  Transmission Date: 20160305
  Serious: Yes (Other)
  Sender: FDA-Public Use
  Company Number: US-JNJFOC-20151124062

PATIENT
  Sex: Female
  Weight: 63.5 kg

DRUGS (6)
  1. NEUTROGENA NORWEGIAN FORMULA HAND CREAM [Suspect]
     Active Substance: COSMETICS
     Indication: DRY SKIN
     Dosage: 1-2 A DAY
     Route: 065
  2. NEUTROGENA NORWEGIAN FORMULA FOOT CREAM [Suspect]
     Active Substance: COSMETICS
     Indication: DRY SKIN
     Dosage: 1-2 A DAY
     Route: 061
  3. EQUATE NASAL [Concomitant]
     Active Substance: OXYMETAZOLINE HYDROCHLORIDE\PHENYLEPHRINE HYDROCHLORIDE
     Indication: MULTIPLE ALLERGIES
     Route: 065
  4. FISH OIL W/VITAMIN E NOS [Concomitant]
     Indication: PRODUCT USED FOR UNKNOWN INDICATION
     Route: 065
  5. NEUTROGENA NORWEGIAN FORMULA FOOT CREAM [Suspect]
     Active Substance: COSMETICS
     Indication: HYPERKERATOSIS
     Dosage: 1-2 A DAY
     Route: 061
  6. EQUATE NASAL [Concomitant]
     Active Substance: OXYMETAZOLINE HYDROCHLORIDE\PHENYLEPHRINE HYDROCHLORIDE
     Indication: ALLERGY TO ANIMAL
     Route: 065

REACTIONS (1)
  - Cardiac disorder [Unknown]
